FAERS Safety Report 7076503-0 (Version None)
Quarter: 2010Q4

REPORT INFORMATION
  Report Type: 
  Country: None (occurrence: None)
  Receive Date: 20101101
  Receipt Date: 20101018
  Transmission Date: 20110411
  Serious: Yes (Other)
  Sender: FDA-Public Use
  Company Number: US-ELI_LILLY_AND_COMPANY-US201009004717

PATIENT
  Sex: Female

DRUGS (11)
  1. FORTEO [Suspect]
     Indication: OSTEOPOROSIS
     Dosage: 20 UG, DAILY (1/D)
     Dates: start: 20100401
  2. CALCIUM WITH VITAMIN D [Concomitant]
     Dosage: 120 IU, 2/D
  3. MULTI-VITAMINS [Concomitant]
     Dosage: UNK, DAILY (1/D)
  4. ASCORBIC ACID [Concomitant]
     Dosage: 1200 MG, DAILY (1/D)
  5. GELATIN [Concomitant]
     Dosage: UNK, 3/D
  6. CLONAZEPAM [Concomitant]
     Dosage: 0.05 MG, EACH EVENING
  7. ESTRADIOL [Concomitant]
     Dosage: 0.5 MG, DAILY (1/D)
  8. FISH OIL [Concomitant]
     Dosage: 1200 MG, DAILY (1/D)
  9. TYLENOL (CAPLET) [Concomitant]
     Dosage: 650 MG, 2/D
  10. PREMARIN [Concomitant]
     Dosage: UNK, 2/W
     Route: 067
  11. STOOL SOFTENER [Concomitant]
     Dosage: UNK, 2/D

REACTIONS (5)
  - ASTHENIA [None]
  - BLADDER CANCER STAGE 0, WITH CANCER IN SITU [None]
  - CYSTOCELE [None]
  - FATIGUE [None]
  - RECTOCELE [None]
